FAERS Safety Report 8409688-1 (Version None)
Quarter: 2012Q2

REPORT INFORMATION
  Report Type: 
  Country: None (occurrence: None)
  Receive Date: 20120529
  Receipt Date: 20120515
  Transmission Date: 20120825
  Serious: Yes (Other)
  Sender: FDA-Public Use
  Company Number: 1288611

PATIENT
  Age: 69 Year
  Sex: Female
  Weight: 71.82 kg

DRUGS (5)
  1. BENADRYL [Concomitant]
  2. DECADRON [Concomitant]
  3. PACLITAXEL [Suspect]
     Indication: BLOOD CALCIUM
     Dosage: 300 MG, Q 3 WK, INTRAVENOUS
     Route: 042
     Dates: start: 20120515, end: 20120515
  4. PEPCID [Concomitant]
  5. ALOXI [Concomitant]

REACTIONS (5)
  - CHEST DISCOMFORT [None]
  - BACK PAIN [None]
  - DRUG HYPERSENSITIVITY [None]
  - HYPOAESTHESIA [None]
  - ERYTHEMA [None]
